FAERS Safety Report 8801560 (Version 1)
Quarter: 2012Q4

REPORT INFORMATION
  Report Type: 
  Country: TW (occurrence: TW)
  Receive Date: 20120921
  Receipt Date: 20120921
  Transmission Date: 20130627
  Serious: Yes (Other)
  Sender: FDA-Public Use
  Company Number: TW-JNJFOC-20120905137

PATIENT
  Sex: Male

DRUGS (5)
  1. RISPERDAL [Suspect]
     Indication: SCHIZOPHRENIA
     Route: 048
     Dates: start: 20120125, end: 20120418
  2. CLONAPAM [Suspect]
     Indication: INSOMNIA
     Route: 048
     Dates: start: 20120125, end: 20120223
  3. ESZO (ESTAZOLAM) [Suspect]
     Indication: PRODUCT USED FOR UNKNOWN INDICATION
     Route: 065
  4. PHENYTOIN PHENOBARBITAL [Suspect]
     Indication: PRODUCT USED FOR UNKNOWN INDICATION
     Route: 065
  5. DILANTIN [Suspect]
     Indication: PRODUCT USED FOR UNKNOWN INDICATION
     Route: 065

REACTIONS (7)
  - Concussion [Unknown]
  - Laceration [Unknown]
  - Tremor [Unknown]
  - Nervousness [Unknown]
  - Fall [Unknown]
  - Dizziness [Unknown]
  - Fear [None]
